FAERS Safety Report 5884157-1 (Version None)
Quarter: 2008Q3

REPORT INFORMATION
  Report Type: 
  Country: None (occurrence: None)
  Receive Date: 20080915
  Receipt Date: 20080904
  Transmission Date: 20090109
  Serious: Yes (Hospitalization, Disabling)
  Sender: FDA-Public Use
  Company Number: PHEH1995US01996

PATIENT
  Sex: Male
  Weight: 89.5 kg

DRUGS (8)
  1. NEORAL [Suspect]
     Route: 048
     Dates: start: 19941126
  2. PREDNISONE [Concomitant]
     Route: 048
     Dates: start: 19950509
  3. IMURAN [Concomitant]
     Route: 048
     Dates: start: 19941125
  4. TRENTAL [Concomitant]
     Route: 048
     Dates: start: 19941130
  5. PEPCID [Concomitant]
     Route: 048
     Dates: start: 19941125
  6. INSULIN (INSULIN) [Concomitant]
     Dosage: UNSPECIFIED
     Route: 058
  7. CITRUCEL (METHYLCELLULOSE) [Concomitant]
  8. PANCREATIC ENZYME (DEOXYRIBONUCLEASE, BOVINE) [Concomitant]

REACTIONS (3)
  - ARTERIOSCLEROSIS [None]
  - SEPSIS [None]
  - SURGERY [None]
